FAERS Safety Report 10467127 (Version 2)
Quarter: 2014Q3

REPORT INFORMATION
  Report Type: Spontaneous
  Country: US (occurrence: US)
  Receive Date: 20140922
  Receipt Date: 20140922
  Transmission Date: 20150326
  Serious: Yes (Other)
  Sender: FDA-Public Use
  Company Number: US-EISAI MEDICAL RESEARCH-E2007-01805-SPO-US

PATIENT
  Age: 31 Year
  Sex: Female
  Weight: 81 kg

DRUGS (5)
  1. VALPROIC ACID. [Concomitant]
     Active Substance: VALPROIC ACID
     Indication: EPILEPSY
     Dates: start: 2013
  2. LAMICTAL [Concomitant]
     Active Substance: LAMOTRIGINE
     Indication: EPILEPSY
     Dates: start: 201407
  3. FYCOMPA [Suspect]
     Active Substance: PERAMPANEL
     Indication: PRODUCT USED FOR UNKNOWN INDICATION
     Dosage: UP-TITRATED (UNSPECIFIED)
     Route: 048
     Dates: start: 2014, end: 2014
  4. FYCOMPA [Suspect]
     Active Substance: PERAMPANEL
     Dosage: DOWN-TITRATED (UNSPECIFIED)
     Route: 048
     Dates: start: 2014, end: 2014
  5. TOPIRAMATE. [Concomitant]
     Active Substance: TOPIRAMATE
     Indication: EPILEPSY
     Dates: start: 2011

REACTIONS (1)
  - Convulsion [Recovered/Resolved]

NARRATIVE: CASE EVENT DATE: 20140517
